FAERS Safety Report 15883327 (Version 1)
Quarter: 2019Q1

REPORT INFORMATION
  Report Type: Spontaneous
  Country: DE (occurrence: DE)
  Receive Date: 20190129
  Receipt Date: 20190129
  Transmission Date: 20190417
  Serious: Yes (Hospitalization)
  Sender: FDA-Public Use
  Company Number: DE-ACCORD-103722

PATIENT
  Age: 52 Year
  Sex: Female

DRUGS (13)
  1. METAMIZOLE SODIUM [Concomitant]
     Active Substance: METAMIZOLE SODIUM
     Dosage: AS NEEDED, DROPS
  2. ERYTHROPOIETIN [Concomitant]
     Active Substance: ERYTHROPOIETIN
     Dosage: 4000 IU / DAY, 0.5-0-0-0
  3. IRON [Concomitant]
     Active Substance: IRON
     Dosage: 1X / WEEK,
  4. SIMVASTATIN. [Concomitant]
     Active Substance: SIMVASTATIN
     Dosage: 40 MG, 0-0-0-0.5
  5. CINACALCET. [Suspect]
     Active Substance: CINACALCET
     Indication: PRODUCT USED FOR UNKNOWN INDICATION
     Dosage: 60 MG, 0-0-0-1
  6. PARICALCITOL. [Suspect]
     Active Substance: PARICALCITOL
     Indication: PRODUCT USED FOR UNKNOWN INDICATION
     Dosage: 5 MG, 2XW
  7. METOPROLOL. [Concomitant]
     Active Substance: METOPROLOL
     Dosage: 47.5 MG, 0-1-0-0
  8. COLECALCIFEROL [Concomitant]
     Active Substance: CHOLECALCIFEROL
     Dosage: 20000 IU / WEEK, 0.5-0-0-0
  9. SEVELAMER [Concomitant]
     Active Substance: SEVELAMER
     Dosage: 2.4 G, 1-1-1-0
  10. PROTAPHANE [Concomitant]
     Active Substance: INSULIN HUMAN
     Dosage: AFTER BZ IE, 1-1-1-0
  11. IRON [Concomitant]
     Active Substance: IRON
     Dosage: 500 MG, 1-1-1-0
  12. ACTRAPID [Concomitant]
     Active Substance: INSULIN HUMAN
     Dosage: AFTER BZ IE, 1-1-1-0
  13. PYRIDOXINE [Concomitant]
     Active Substance: PYRIDOXINE
     Dosage: 0-1-0-0

REACTIONS (2)
  - Palpitations [Unknown]
  - Tachycardia [Unknown]
